FAERS Safety Report 14524496 (Version 1)
Quarter: 2018Q1

REPORT INFORMATION
  Report Type: Spontaneous
  Country: US (occurrence: US)
  Receive Date: 20180213
  Receipt Date: 20180213
  Transmission Date: 20180509
  Serious: Yes (Death)
  Sender: FDA-Public Use
  Company Number: US-ROCHE-2073821

PATIENT
  Age: 90 Year
  Sex: Male

DRUGS (7)
  1. FINASTERIDE. [Concomitant]
     Active Substance: FINASTERIDE
  2. METHOTREXATE. [Concomitant]
     Active Substance: METHOTREXATE
  3. LEVOTHYROXINE. [Concomitant]
     Active Substance: LEVOTHYROXINE
  4. ESBRIET [Suspect]
     Active Substance: PIRFENIDONE
     Indication: IDIOPATHIC PULMONARY FIBROSIS
     Route: 048
     Dates: start: 20151108
  5. TAMSULOSIN [Concomitant]
     Active Substance: TAMSULOSIN
  6. PAROXETINE. [Concomitant]
     Active Substance: PAROXETINE
  7. PREDNISONE. [Concomitant]
     Active Substance: PREDNISONE

REACTIONS (1)
  - Death [Fatal]

NARRATIVE: CASE EVENT DATE: 20180208
